FAERS Safety Report 4805408-8 (Version None)
Quarter: 2005Q4

REPORT INFORMATION
  Report Type: 
  Country: None (occurrence: None)
  Receive Date: 20051017
  Receipt Date: 20050923
  Transmission Date: 20060501
  Serious: No
  Sender: FDA-Public Use
  Company Number: TPA2005A01122

PATIENT
  Age: 48 Year
  Sex: Male
  Weight: 136.0791 kg

DRUGS (7)
  1. ACTOS [Suspect]
     Indication: DIABETES MELLITUS NON-INSULIN-DEPENDENT
     Dosage: 15 MG, 1 IN 1 D, PER ORAL
     Route: 048
     Dates: start: 20050909
  2. XANAX (ALPRAZOLAM) (2 MILLIGRAM) [Concomitant]
  3. SOMA (CARISOPRODOL) (350  MILLIGRAM) [Concomitant]
  4. ZOLOFT (SERTRALINE HYDROCHLORIDE) (100 MILLIGRAM) [Concomitant]
  5. METHOTREXATE (METHOTREXATE) (2.5 MILLIGRAM) [Concomitant]
  6. HYDROCODONE/APAP (PROCET) [Concomitant]
  7. INDOMETHACIN (INDOMETHACIN) (75 MILLIGRAM) [Concomitant]

REACTIONS (3)
  - DYSPNOEA [None]
  - NEUROMA [None]
  - WEIGHT INCREASED [None]
